FAERS Safety Report 4362498-7 (Version None)
Quarter: 2004Q2

REPORT INFORMATION
  Report Type: 
  Country: None (occurrence: None)
  Receive Date: 20040521
  Receipt Date: 20040512
  Transmission Date: 20050107
  Serious: Yes (Other)
  Sender: FDA-Public Use
  Company Number: PHEH2004US05212

PATIENT
  Age: 27 Year
  Sex: Male
  Weight: 82 kg

DRUGS (11)
  1. ZELNORM [Suspect]
     Indication: GASTROINTESTINAL MOTILITY DISORDER
     Dosage: 6 MG, BID
     Route: 048
     Dates: start: 20040221, end: 20040512
  2. ZELNORM [Suspect]
     Dosage: TWO PRN DOSES
     Route: 048
     Dates: start: 20040501, end: 20040501
  3. OSMOLITE [Concomitant]
  4. PRILOSEC [Concomitant]
     Indication: DYSPEPSIA
     Dosage: UNK, UNK
     Dates: start: 20020318
  5. GUAIFENESIN [Concomitant]
     Indication: COUGH
     Dates: start: 20020101
  6. L-LYSINE [Concomitant]
     Dates: start: 20020101
  7. LACTINEX [Concomitant]
     Dates: start: 20020101
  8. DETROL [Concomitant]
     Indication: BLADDER DISORDER
     Dates: start: 20040101
  9. NEURONTIN [Concomitant]
     Indication: BLADDER DISORDER
     Dates: start: 20030101
  10. REGLAN [Concomitant]
  11. URISPAS [Concomitant]
     Indication: BLADDER SPASM
     Dosage: UNK, UNK
     Dates: start: 20031001

REACTIONS (3)
  - BLADDER CATHETERISATION [None]
  - MEDICATION ERROR [None]
  - URINARY RETENTION [None]
